FAERS Safety Report 9806959 (Version 1)
Quarter: 2014Q1

REPORT INFORMATION
  Report Type: Report from Study
  Country: NL (occurrence: NL)
  Receive Date: 20140109
  Receipt Date: 20140109
  Transmission Date: 20141002
  Serious: Yes (Hospitalization)
  Sender: FDA-Public Use
  Company Number: NL-ABBVIE-14P-114-1187618-00

PATIENT
  Age: 44 Year
  Sex: Female
  Weight: 75 kg

DRUGS (3)
  1. LUCRIN DEPOT [Suspect]
     Indication: ENDOMETRIOSIS
     Route: 058
     Dates: start: 2003, end: 2012
  2. LUCRIN DEPOT [Suspect]
     Route: 058
     Dates: start: 20130419
  3. ENALAPRIL [Concomitant]
     Indication: BLOOD PRESSURE DECREASED
     Route: 048
     Dates: start: 2003

REACTIONS (8)
  - Vesicoureteral reflux surgery [Unknown]
  - Enterostomy [Unknown]
  - Hysterectomy [Unknown]
  - Oophorectomy [Unknown]
  - Headache [Not Recovered/Not Resolved]
  - Vomiting [Not Recovered/Not Resolved]
  - Ovarian cyst [Not Recovered/Not Resolved]
  - Haemorrhage [Not Recovered/Not Resolved]
